FAERS Safety Report 4699438-7 (Version None)
Quarter: 2005Q2

REPORT INFORMATION
  Report Type: 
  Country: None (occurrence: None)
  Receive Date: 20050622
  Receipt Date: 20050614
  Transmission Date: 20051028
  Serious: Yes (Hospitalization)
  Sender: FDA-Public Use
  Company Number: SU-2005-003536

PATIENT
  Age: 42 Year
  Sex: Female

DRUGS (5)
  1. OLMESARTAN [Suspect]
     Indication: HYPERTENSION
     Dosage: 20 MG QD PO
     Route: 048
     Dates: start: 20040101
  2. ASPIRIN [Suspect]
     Indication: MYOCARDIAL INFARCTION
     Route: 048
     Dates: start: 20030101
  3. ASPIRIN [Suspect]
     Indication: PROPHYLAXIS
     Route: 048
     Dates: start: 20030101
  4. CALCIUM GLUCONATE [Concomitant]
  5. RALOXIFENE HCL [Concomitant]

REACTIONS (2)
  - CONTUSION [None]
  - PURPURA [None]
